FAERS Safety Report 12599501 (Version 1)
Quarter: 2016Q3

REPORT INFORMATION
  Report Type: Spontaneous
  Country: US (occurrence: US)
  Receive Date: 20160727
  Receipt Date: 20160727
  Transmission Date: 20161109
  Serious: No
  Sender: FDA-Public Use
  Company Number: US-PFIZER INC-2016326845

PATIENT
  Age: 75 Year
  Sex: Female
  Weight: 95 kg

DRUGS (1)
  1. CELEBREX [Suspect]
     Active Substance: CELECOXIB
     Indication: ARTHROPATHY
     Dosage: 200 MG, 2X/DAY, MAYBE 200MG TWICE A DAY
     Dates: start: 1980

REACTIONS (3)
  - Product use issue [Unknown]
  - Chest pain [Recovered/Resolved]
  - Speech disorder [Unknown]

NARRATIVE: CASE EVENT DATE: 1980
